FAERS Safety Report 25461390 (Version 1)
Quarter: 2025Q2

REPORT INFORMATION
  Report Type: Spontaneous
  Country: US (occurrence: None)
  Receive Date: 20250618
  Receipt Date: 20250618
  Transmission Date: 20250716
  Serious: No
  Sender: FDA-CTU
  Company Number: None

PATIENT
  Age: 69 Year
  Sex: Female
  Weight: 69.85 kg

DRUGS (9)
  1. TALTZ [Suspect]
     Active Substance: IXEKIZUMAB
     Indication: Psoriasis
     Route: 058
     Dates: start: 20250607
  2. Multivitamin tablet [Concomitant]
  3. PANTOPRAZOLE [Concomitant]
     Active Substance: PANTOPRAZOLE
  4. Calcium Carbonate 1250mg tablet [Concomitant]
  5. ESCITALOPRAM OXALATE [Concomitant]
     Active Substance: ESCITALOPRAM OXALATE
  6. Pregabalin 50mg caps [Concomitant]
  7. LOSARTAN [Concomitant]
     Active Substance: LOSARTAN
  8. Levothyroxine 100mcg tablet [Concomitant]
  9. Wixela Inhub 250-50mcg/act AEPB [Concomitant]

REACTIONS (4)
  - Inappropriate schedule of product administration [None]
  - Extra dose administered [None]
  - Therapy interrupted [None]
  - Pneumonia [None]

NARRATIVE: CASE EVENT DATE: 20250618
